FAERS Safety Report 6562804-9 (Version None)
Quarter: 2010Q1

REPORT INFORMATION
  Report Type: 
  Country: None (occurrence: None)
  Receive Date: 20100130
  Receipt Date: 20091226
  Transmission Date: 20100710
  Serious: No
  Sender: FDA-Public Use
  Company Number: US-ABBOTT-09P-163-0610061-00

PATIENT
  Sex: Female
  Weight: 68.1 kg

DRUGS (6)
  1. HUMIRA [Suspect]
     Indication: PSORIASIS
     Route: 058
  2. CYCLOSPORINE [Concomitant]
     Indication: DRUG USE FOR UNKNOWN INDICATION
     Route: 048
  3. PRAVASTATIN [Concomitant]
     Indication: DRUG USE FOR UNKNOWN INDICATION
     Route: 048
  4. HYDROXYZINE [Concomitant]
     Indication: DRUG USE FOR UNKNOWN INDICATION
     Route: 048
  5. AQUAPHOR AND EUCERIN [Concomitant]
     Indication: PSORIASIS
     Dosage: COMPOUNDED TOPICAL
     Route: 061
  6. CETAPHYL [Concomitant]
     Indication: PSORIASIS
     Route: 061

REACTIONS (2)
  - ALOPECIA [None]
  - WRONG TECHNIQUE IN DRUG USAGE PROCESS [None]
